FAERS Safety Report 12208205 (Version 3)
Quarter: 2016Q3

REPORT INFORMATION
  Report Type: Spontaneous
  Country: US (occurrence: US)
  Receive Date: 20160324
  Receipt Date: 20160705
  Transmission Date: 20161109
  Serious: Yes (Life-Threatening, Hospitalization, Other)
  Sender: FDA-Public Use
  Company Number: US-BAYER-2016-054677

PATIENT
  Age: 29 Year
  Sex: Female
  Weight: 79.37 kg

DRUGS (6)
  1. SEASONIQUE [Concomitant]
     Active Substance: ETHINYL ESTRADIOL\LEVONORGESTREL
     Dosage: UNK
     Dates: start: 2005
  2. YAZ [Suspect]
     Active Substance: DROSPIRENONE\ETHINYL ESTRADIOL
     Indication: PREMENSTRUAL CRAMPS
  3. YAZ [Suspect]
     Active Substance: DROSPIRENONE\ETHINYL ESTRADIOL
     Indication: CONTRACEPTION
     Dosage: UNK
     Dates: start: 2002, end: 2010
  4. YASMIN [Suspect]
     Active Substance: DROSPIRENONE\ETHINYL ESTRADIOL
  5. PRENATAL VITAMINS [Concomitant]
     Active Substance: VITAMINS
  6. ROBINUL [Concomitant]
     Active Substance: GLYCOPYRROLATE
     Indication: HYPERHIDROSIS
     Dosage: UNK, PRN

REACTIONS (5)
  - Deep vein thrombosis [None]
  - Venous thrombosis [None]
  - Transverse sinus thrombosis [None]
  - Intracranial venous sinus thrombosis [None]
  - Maternal exposure before pregnancy [None]

NARRATIVE: CASE EVENT DATE: 20150325
